FAERS Safety Report 17439450 (Version 1)
Quarter: 2020Q1

REPORT INFORMATION
  Report Type: Spontaneous
  Country: US (occurrence: US)
  Receive Date: 20200219
  Receipt Date: 20200219
  Transmission Date: 20200409
  Serious: No
  Sender: FDA-Public Use
  Company Number: None

PATIENT
  Age: 8 Year
  Sex: Male

DRUGS (8)
  1. MULTIVITAMIN [Concomitant]
     Active Substance: VITAMINS
  2. PULMOZYME 1MG NEBS [Concomitant]
  3. CREON 12000 UNITS [Concomitant]
  4. URSODIOL 250MG [Concomitant]
  5. CETIRIZINE 1MG/ML [Concomitant]
  6. ALBUTEROL 0.083%NEB [Concomitant]
  7. ORKAMBI [Suspect]
     Active Substance: IVACAFTOR\LUMACAFTOR
     Indication: CYSTIC FIBROSIS
     Route: 048
  8. PREVACID 15 MG [Concomitant]

REACTIONS (1)
  - Influenza [None]

NARRATIVE: CASE EVENT DATE: 20200212
